FAERS Safety Report 24360926 (Version 1)
Quarter: 2024Q3

REPORT INFORMATION
  Report Type: Spontaneous
  Country: US (occurrence: None)
  Receive Date: 20240924
  Receipt Date: 20240924
  Transmission Date: 20241016
  Serious: Yes (Death)
  Sender: Public
  Company Number: None

PATIENT
  Age: 28 Year
  Sex: Female

DRUGS (2)
  1. MIFEPRISTONE [Suspect]
     Active Substance: MIFEPRISTONE
     Indication: Abortion induced
     Dates: start: 20220813, end: 20220813
  2. MISOPROSTOL [Suspect]
     Active Substance: MISOPROSTOL
     Indication: Abortion induced
     Dates: start: 20220814, end: 20220814

REACTIONS (6)
  - Exposure during pregnancy [None]
  - Maternal drugs affecting foetus [None]
  - Haematemesis [None]
  - Loss of consciousness [None]
  - Retained products of conception [None]
  - Septic shock [None]

NARRATIVE: CASE EVENT DATE: 20220819
